FAERS Safety Report 12043917 (Version 1)
Quarter: 2016Q1

REPORT INFORMATION
  Report Type: Spontaneous
  Country: US (occurrence: US)
  Receive Date: 20160208
  Receipt Date: 20160208
  Transmission Date: 20160526
  Serious: No
  Sender: FDA-Public Use
  Company Number: US-WATSON-2015-19950

PATIENT
  Sex: Male

DRUGS (1)
  1. CANASA [Suspect]
     Active Substance: MESALAMINE
     Indication: COLITIS
     Dosage: 1000 MG, UNKNOWN
     Route: 054
     Dates: start: 201509

REACTIONS (1)
  - Steatorrhoea [Recovered/Resolved]

NARRATIVE: CASE EVENT DATE: 201509
